FAERS Safety Report 8043236-3 (Version None)
Quarter: 2012Q1

REPORT INFORMATION
  Report Type: 
  Country: None (occurrence: None)
  Receive Date: 20120112
  Receipt Date: 20120104
  Transmission Date: 20120608
  Serious: Yes (Hospitalization)
  Sender: FDA-Public Use
  Company Number: US-JNJFOC-20120102197

PATIENT
  Sex: Male
  Weight: 64.7 kg

DRUGS (5)
  1. XOPENEX [Concomitant]
  2. SINGULAIR [Concomitant]
  3. REMICADE [Suspect]
     Indication: INFLAMMATORY BOWEL DISEASE
     Route: 042
     Dates: start: 20100513
  4. METHOTREXATE [Concomitant]
  5. ZOLOFT [Concomitant]

REACTIONS (1)
  - CLOSTRIDIAL INFECTION [None]
